FAERS Safety Report 19009878 (Version 1)
Quarter: 2021Q1

REPORT INFORMATION
  Report Type: Spontaneous
  Country: FR (occurrence: FR)
  Receive Date: 20210315
  Receipt Date: 20210315
  Transmission Date: 20210420
  Serious: Yes (Hospitalization)
  Sender: FDA-Public Use
  Company Number: NVSC2021FR050123

PATIENT
  Age: 70 Year
  Sex: Male
  Weight: 96 kg

DRUGS (3)
  1. CYCLOPHOSPHAMIDE SANDOZ [Suspect]
     Active Substance: CYCLOPHOSPHAMIDE
     Dosage: 4800 MG
     Route: 042
     Dates: start: 20210129, end: 20210130
  2. FLUDARABINE PHOSPHATE. [Suspect]
     Active Substance: FLUDARABINE PHOSPHATE
     Indication: MYELODYSPLASTIC SYNDROME
     Dosage: 150 MG/M2
     Route: 042
     Dates: start: 202101
  3. CYCLOPHOSPHAMIDE SANDOZ [Suspect]
     Active Substance: CYCLOPHOSPHAMIDE
     Indication: MYELODYSPLASTIC SYNDROME
     Dosage: 1400 MG
     Route: 042
     Dates: start: 20210120, end: 20210121

REACTIONS (3)
  - Acute kidney injury [Recovering/Resolving]
  - Troponin increased [Recovering/Resolving]
  - Arrhythmia [Recovering/Resolving]

NARRATIVE: CASE EVENT DATE: 20210130
